FAERS Safety Report 4395685-2 (Version None)
Quarter: 2004Q3

REPORT INFORMATION
  Report Type: 
  Country: None (occurrence: None)
  Receive Date: 20040708
  Receipt Date: 20040625
  Transmission Date: 20050211
  Serious: Yes (Other)
  Sender: FDA-Public Use
  Company Number: US-JNJFOC-20040607908

PATIENT
  Age: 57 Year
  Sex: Female

DRUGS (6)
  1. INFLIXIMAB(INFLIXIMAB, RECOMBINANT) LYOPHILIZED POWDER [Suspect]
     Indication: RHEUMATOID ARTHRITIS
     Dosage: INTRAVENOUS
     Route: 042
     Dates: start: 20010529, end: 20010601
  2. FOSAMAX [Concomitant]
  3. PLAQUENIL [Concomitant]
  4. PREDNISONE TAB [Concomitant]
  5. ADVIL [Concomitant]
  6. MULTIVITAMIN (MULTIVITAMINS) [Concomitant]

REACTIONS (1)
  - VAGINAL CANCER [None]
